FAERS Safety Report 10278516 (Version 1)
Quarter: 2014Q3

REPORT INFORMATION
  Report Type: Spontaneous
  Country: CZ (occurrence: CZ)
  Receive Date: 20140704
  Receipt Date: 20140704
  Transmission Date: 20150326
  Serious: Yes (Hospitalization)
  Sender: FDA-Public Use
  Company Number: PHHY2014CZ082525

PATIENT
  Age: 33 Year

DRUGS (4)
  1. ZYPREXA [Suspect]
     Active Substance: OLANZAPINE
  2. ZOLPIDEM [Suspect]
     Active Substance: ZOLPIDEM\ZOLPIDEM TARTRATE
     Dosage: 100 MG, UNK
  3. ALPRAZOLAM. [Suspect]
     Active Substance: ALPRAZOLAM
     Dosage: 15 MG, UNK
  4. CLONAZEPAM. [Suspect]
     Active Substance: CLONAZEPAM
     Dosage: 25 MG, UNK

REACTIONS (2)
  - Toxicity to various agents [Unknown]
  - Loss of consciousness [Unknown]
